FAERS Safety Report 21434095 (Version 1)
Quarter: 2022Q4

REPORT INFORMATION
  Report Type: Spontaneous
  Country: SE (occurrence: SE)
  Receive Date: 20221010
  Receipt Date: 20221010
  Transmission Date: 20230112
  Serious: Yes (Congenital Anomaly, Other)
  Sender: FDA-Public Use
  Company Number: SE-MPA-1510575486536

PATIENT
  Sex: Female

DRUGS (4)
  1. LAMOTRIGINE [Suspect]
     Active Substance: LAMOTRIGINE
     Indication: Epilepsy
     Dosage: 500 MILLIGRAM, ONCE A DAY
     Route: 064
     Dates: start: 20171012
  2. LAMOTRIGINE [Suspect]
     Active Substance: LAMOTRIGINE
     Dosage: 600 MILLIGRAM, ONCE A DAY
     Route: 064
     Dates: start: 20171013
  3. LEVETIRACETAM [Suspect]
     Active Substance: LEVETIRACETAM
     Indication: Epilepsy
     Dosage: 300 MILLIGRAM, ONCE A DAY
     Route: 064
     Dates: start: 201708
  4. Folacin [Concomitant]
     Indication: Product used for unknown indication
     Dosage: UNK
     Route: 065
     Dates: start: 201708

REACTIONS (4)
  - Dandy-Walker syndrome [Unknown]
  - Foetal malformation [Unknown]
  - Umbilical hernia [Unknown]
  - Foetal exposure during pregnancy [Unknown]

NARRATIVE: CASE EVENT DATE: 20171102
